FAERS Safety Report 6882329-0 (Version None)
Quarter: 2010Q3

REPORT INFORMATION
  Report Type: 
  Country: None (occurrence: None)
  Receive Date: 20100729
  Receipt Date: 20100125
  Transmission Date: 20110219
  Serious: No
  Sender: FDA-Public Use
  Company Number: US-MYLANLABS-2009S1022173

PATIENT
  Age: 44 Year
  Sex: Female
  Weight: 89.36 kg

DRUGS (10)
  1. LEVOTHYROXINE SODIUM [Suspect]
     Indication: HYPOTHYROIDISM
     Route: 048
     Dates: start: 20090301, end: 20090701
  2. LEVOTHYROXINE SODIUM [Suspect]
     Route: 048
     Dates: start: 20090701, end: 20090901
  3. THYROID TAB [Suspect]
     Indication: HYPOTHYROIDISM
     Route: 048
     Dates: end: 20090301
  4. THYROID TAB [Suspect]
     Route: 048
     Dates: start: 20090301, end: 20090701
  5. THYROID TAB [Suspect]
     Route: 048
     Dates: start: 20090901
  6. SEROQUEL [Concomitant]
  7. BUSPAR [Concomitant]
  8. KLONOPIN [Concomitant]
  9. TRAZODONE [Concomitant]
  10. CELEXA [Concomitant]

REACTIONS (7)
  - CRYING [None]
  - DEPRESSION [None]
  - DRUG INEFFECTIVE [None]
  - FATIGUE [None]
  - HYPERSOMNIA [None]
  - LIBIDO DECREASED [None]
  - WEIGHT INCREASED [None]
